FAERS Safety Report 12920868 (Version 1)
Quarter: 2016Q4

REPORT INFORMATION
  Report Type: Spontaneous
  Country: US (occurrence: US)
  Receive Date: 20161107
  Receipt Date: 20161107
  Transmission Date: 20170207
  Serious: Yes (Other)
  Sender: FDA-Public Use
  Company Number: None

PATIENT
  Age: 64 Year
  Sex: Male
  Weight: 137.7 kg

DRUGS (8)
  1. MULTI-VITAMIN [Concomitant]
     Active Substance: .ALPHA.-TOCOPHEROL ACETATE, DL-\ASCORBIC ACID\CYANOCOBALAMIN\FLUORIDE ION\FOLIC ACID\NIACIN\PYRIDOXINE\RIBOFLAVIN\THIAMINE\VITAMIN A\VITAMIN D
  2. IRON [Concomitant]
     Active Substance: IRON
  3. VITAMIN B12 [Concomitant]
     Active Substance: CYANOCOBALAMIN
  4. VENLAFAXINE HCL [Concomitant]
     Active Substance: VENLAFAXINE HYDROCHLORIDE
  5. VITAMIN D [Concomitant]
     Active Substance: CHOLECALCIFEROL
  6. GLUCOSAMINE/CONDROITIN [Concomitant]
  7. TRIAMTERENE HCTZ [Suspect]
     Active Substance: HYDROCHLOROTHIAZIDE\TRIAMTERENE
     Indication: BLOOD PRESSURE MANAGEMENT
     Dosage: ?          QUANTITY:90 CAPSULE(S);?
     Route: 048
     Dates: start: 20160713, end: 20161013
  8. TYLANOL [Concomitant]

REACTIONS (4)
  - Weight increased [None]
  - Product substitution issue [None]
  - Oedema peripheral [None]
  - Micturition disorder [None]

NARRATIVE: CASE EVENT DATE: 20161013
